FAERS Safety Report 7115615-X (Version None)
Quarter: 2010Q4

REPORT INFORMATION
  Report Type: 
  Country: None (occurrence: None)
  Receive Date: 20101122
  Receipt Date: 20101119
  Transmission Date: 20110411
  Serious: Yes (Death, Hospitalization, Other)
  Sender: FDA-Public Use
  Company Number: US-ROXANE LABORATORIES, INC.-2010-RO-01523RO

PATIENT
  Sex: Female

DRUGS (15)
  1. DEXAMETHASONE [Suspect]
     Indication: MULTIPLE MYELOMA
     Dosage: 40 MG
     Route: 048
  2. ELOTUZUMAB [Suspect]
     Indication: MULTIPLE MYELOMA
     Route: 042
     Dates: start: 20081125
  3. LENALIDOMIDE [Suspect]
     Indication: MULTIPLE MYELOMA
     Dosage: 25 MG
     Route: 048
  4. NEXIUM [Concomitant]
  5. CYMBALTA [Concomitant]
  6. CALCIUM PLUS VITAMIN D [Concomitant]
  7. LEVOTHYROXINE [Concomitant]
  8. POTASSIUM CHLORIDE [Concomitant]
  9. ZOMETA [Concomitant]
  10. ACYCLOVIR [Concomitant]
  11. BACTRIM DS [Concomitant]
  12. ASPIRIN [Concomitant]
  13. TYLENOL (CAPLET) [Concomitant]
  14. POTASSIUM CHLORIDE [Concomitant]
  15. LYRICA [Concomitant]

REACTIONS (5)
  - ATRIAL FIBRILLATION [None]
  - GASTROINTESTINAL HAEMORRHAGE [None]
  - GASTROINTESTINAL PERFORATION [None]
  - METABOLIC ACIDOSIS [None]
  - RENAL FAILURE ACUTE [None]
